FAERS Safety Report 11047257 (Version 2)
Quarter: 2015Q3

REPORT INFORMATION
  Report Type: Report from Study
  Country: JP (occurrence: JP)
  Receive Date: 20150420
  Receipt Date: 20150819
  Transmission Date: 20151125
  Serious: Yes (Hospitalization)
  Sender: FDA-Public Use
  Company Number: JP-ROCHE-1565442

PATIENT
  Age: 75 Year
  Sex: Male

DRUGS (13)
  1. RITUXIMAB [Suspect]
     Active Substance: RITUXIMAB
     Indication: B-CELL LYMPHOMA
     Dosage: CYC
     Route: 042
     Dates: start: 20120201, end: 20121001
  2. INNOLET 30R [Concomitant]
     Active Substance: INSULIN NOS
     Route: 065
  3. EXFORGE [Concomitant]
     Active Substance: AMLODIPINE BESYLATE\VALSARTAN
     Route: 065
     Dates: start: 20120803
  4. LAC-B GRANULAR POWDER N [Concomitant]
     Route: 065
     Dates: start: 200311
  5. TOWAMIN [Concomitant]
     Active Substance: ATENOLOL
     Route: 065
  6. FAMOTIDINE D [Concomitant]
     Active Substance: FAMOTIDINE
     Route: 065
     Dates: start: 200311
  7. ERYTHROCIN LACTOBIONATE [Concomitant]
     Active Substance: ERYTHROMYCIN LACTOBIONATE
     Route: 065
     Dates: start: 20120309
  8. MAGMITT [Concomitant]
     Active Substance: MAGNESIUM OXIDE
     Route: 065
     Dates: start: 2011
  9. ZANTHOXYLUM [Concomitant]
  10. SELBEX [Concomitant]
     Active Substance: TEPRENONE
     Route: 065
     Dates: start: 200311
  11. ZINGIBER OFFICINALE [Concomitant]
  12. GINSENG [Concomitant]
     Active Substance: ASIAN GINSENG
  13. CRAVIT [Concomitant]
     Active Substance: LEVOFLOXACIN
     Route: 065
     Dates: start: 20120309

REACTIONS (1)
  - Hepatic neoplasm [Not Recovered/Not Resolved]

NARRATIVE: CASE EVENT DATE: 20130310
